FAERS Safety Report 6138928-7 (Version None)
Quarter: 2009Q1

REPORT INFORMATION
  Report Type: 
  Country: None (occurrence: None)
  Receive Date: 20090331
  Receipt Date: 20090203
  Transmission Date: 20090719
  Serious: No
  Sender: FDA-Public Use
  Company Number: US-B.I. PHARMACEUTICALS,INC./RIDGEFIELD-2009-BP-01315BP

PATIENT
  Sex: Female

DRUGS (1)
  1. COMBIVENT [Suspect]
     Indication: BRONCHITIS
     Dosage: 8PUF
     Route: 055
     Dates: start: 20090109, end: 20090112

REACTIONS (2)
  - MUSCULOSKELETAL DISCOMFORT [None]
  - MYALGIA INTERCOSTAL [None]
